FAERS Safety Report 4938798-6 (Version None)
Quarter: 2006Q1

REPORT INFORMATION
  Report Type: 
  Country: None (occurrence: None)
  Receive Date: 20060306
  Receipt Date: 20060228
  Transmission Date: 20060701
  Serious: Yes (Other)
  Sender: FDA-Public Use
  Company Number: 2006RL000061

PATIENT
  Age: 52 Year
  Sex: Male
  Weight: 83.9154 kg

DRUGS (4)
  1. OMACOR [Suspect]
     Indication: HYPERLIPIDAEMIA
     Dosage: 2000 MG; BID; PO
     Route: 048
  2. AMICAR [Suspect]
     Dosage: 2000 MG; BID;
     Dates: start: 20060213, end: 20060201
  3. ZETIA [Concomitant]
  4. TRICOR [Concomitant]

REACTIONS (2)
  - DRUG DISPENSING ERROR [None]
  - MEDICATION ERROR [None]
